FAERS Safety Report 25946633 (Version 1)
Quarter: 2025Q4

REPORT INFORMATION
  Report Type: Spontaneous
  Country: US (occurrence: US)
  Receive Date: 20251022
  Receipt Date: 20251022
  Transmission Date: 20260118
  Serious: Yes (Hospitalization, Other)
  Sender: SUNOVION
  Company Number: US-SUMITOMO PHARMA SWITZERLAND GMBH-2025SPA013541

PATIENT
  Age: 98 Year
  Sex: Female

DRUGS (1)
  1. GEMTESA [Suspect]
     Active Substance: VIBEGRON
     Indication: Product used for unknown indication
     Dosage: UNK
     Route: 048

REACTIONS (9)
  - Delirium [Unknown]
  - Constipation [Recovering/Resolving]
  - Diarrhoea [Recovered/Resolved]
  - Urinary retention [Recovering/Resolving]
  - Chills [Unknown]
  - Insomnia [Unknown]
  - Pain [Unknown]
  - Bowel movement irregularity [Recovering/Resolving]
  - Restlessness [Unknown]
